FAERS Safety Report 13544875 (Version 3)
Quarter: 2017Q3

REPORT INFORMATION
  Report Type: Spontaneous
  Country: HU (occurrence: HU)
  Receive Date: 20170515
  Receipt Date: 20170811
  Transmission Date: 20171127
  Serious: Yes (Life-Threatening, Hospitalization, Other)
  Sender: FDA-Public Use
  Company Number: HU-B.I. PHARMACEUTICALS,INC./RIDGEFIELD-2017-BI-027108

PATIENT
  Age: 83 Year
  Sex: Male
  Weight: 75 kg

DRUGS (16)
  1. FUROSEMID [Concomitant]
     Active Substance: FUROSEMIDE
     Indication: HYPERTENSION
     Route: 065
  2. STADALAX [Concomitant]
     Active Substance: BISACODYL
     Indication: PRODUCT USED FOR UNKNOWN INDICATION
     Route: 065
  3. RAWEL SR [Concomitant]
     Indication: HYPERTENSION
     Route: 065
  4. RAWEL SR [Concomitant]
     Route: 065
  5. CONCOR [Concomitant]
     Active Substance: BISOPROLOL FUMARATE
     Indication: HYPERTENSION
     Route: 065
  6. EGIRAMLON [Concomitant]
     Indication: HYPERTONIA
     Route: 065
  7. KALIUM R [Concomitant]
     Route: 065
  8. PRADAXA [Suspect]
     Active Substance: DABIGATRAN ETEXILATE MESYLATE
     Indication: ATRIAL FIBRILLATION
     Route: 048
     Dates: start: 20160717, end: 20170508
  9. EGIRAMLON [Concomitant]
     Indication: HYPERTENSION
     Dosage: DOSE: 5/10MG
     Route: 065
  10. CONTROLOC [Concomitant]
     Active Substance: PANTOPRAZOLE SODIUM
     Indication: PROPHYLAXIS
     Route: 065
  11. CONTROLOC [Concomitant]
     Active Substance: PANTOPRAZOLE SODIUM
     Route: 065
  12. FUROSEMID [Concomitant]
     Active Substance: FUROSEMIDE
     Route: 065
  13. KALIUM R [Concomitant]
     Indication: HYPERTENSION
     Route: 065
  14. NIMOTOP [Concomitant]
     Active Substance: NIMODIPINE
     Indication: CEREBRAL DISORDER
     Route: 065
  15. CONTRAMAL [Concomitant]
     Active Substance: TRAMADOL HYDROCHLORIDE
     Indication: HEADACHE
     Route: 048
  16. EBRANTIL [Concomitant]
     Active Substance: URAPIDIL
     Indication: HYPERTENSION
     Route: 065

REACTIONS (4)
  - Haemorrhage intracranial [Not Recovered/Not Resolved]
  - Hypertensive crisis [Unknown]
  - Hypertension [Unknown]
  - Bronchitis [Unknown]

NARRATIVE: CASE EVENT DATE: 20170508
